FAERS Safety Report 13398166 (Version 1)
Quarter: 2017Q2

REPORT INFORMATION
  Report Type: Report from Study
  Country: None (occurrence: BR)
  Receive Date: 20170403
  Receipt Date: 20170403
  Transmission Date: 20170830
  Serious: Yes (Other)
  Sender: FDA-Public Use
  Company Number: BR-ABBVIE-17P-020-1929109-00

PATIENT
  Sex: Female
  Weight: 50 kg

DRUGS (6)
  1. SYNTHROID [Suspect]
     Active Substance: LEVOTHYROXINE SODIUM
     Route: 048
  2. NICORETTE [Suspect]
     Active Substance: NICOTINE
     Indication: NICOTINE DEPENDENCE
     Dosage: FORM OF ADMINISTRATION: CHEWING GUM. EVERYDAY.
     Route: 065
     Dates: start: 2016
  3. SYNTHROID [Suspect]
     Active Substance: LEVOTHYROXINE SODIUM
     Route: 065
  4. SYNTHROID [Suspect]
     Active Substance: LEVOTHYROXINE SODIUM
     Indication: HYPOTHYROIDISM
     Dosage: FORM STRENGTH WAS NOT REPORTED
     Route: 065
  5. BUPROPION HYDROCHLORIDE. [Concomitant]
     Active Substance: BUPROPION HYDROCHLORIDE
     Indication: TOBACCO ABUSE
  6. PURAN [Concomitant]
     Active Substance: LEVOTHYROXINE SODIUM
     Indication: PRODUCT USED FOR UNKNOWN INDICATION

REACTIONS (14)
  - Vision blurred [Not Recovered/Not Resolved]
  - Vitamin supplementation [Not Recovered/Not Resolved]
  - Palpitations [Not Recovered/Not Resolved]
  - Increased appetite [Unknown]
  - Drug administration error [Unknown]
  - Pneumonia [Recovered/Resolved]
  - Maculopathy [Not Recovered/Not Resolved]
  - Cataract [Not Recovered/Not Resolved]
  - Tooth disorder [Unknown]
  - Somnolence [Not Recovered/Not Resolved]
  - Tooth fracture [Not Recovered/Not Resolved]
  - Dry eye [Not Recovered/Not Resolved]
  - Weight increased [Not Recovered/Not Resolved]
  - Inappropriate schedule of drug administration [Unknown]

NARRATIVE: CASE EVENT DATE: 2017
